FAERS Safety Report 11395183 (Version 1)
Quarter: 2015Q3

REPORT INFORMATION
  Report Type: Spontaneous
  Country: US (occurrence: None)
  Receive Date: 20150817
  Receipt Date: 20150817
  Transmission Date: 20151125
  Serious: No
  Sender: FDA-Public Use
  Company Number: None

PATIENT
  Age: 29 Year
  Sex: Female
  Weight: 99.79 kg

DRUGS (4)
  1. PRENATAL VITAMINS [Concomitant]
     Active Substance: VITAMINS
  2. D3 [Concomitant]
     Active Substance: 25-HYDROXYCHOLECALCIFEROL, 5-TRANS-
  3. OMEGA 3 [Concomitant]
     Active Substance: OMEGA-3 FATTY ACIDS
  4. ZOLOFT [Suspect]
     Active Substance: SERTRALINE HYDROCHLORIDE
     Dosage: 1/2 TABLET OF 50 MG ONCE DAILY TAKEN BY MOUTH
     Route: 048

REACTIONS (9)
  - Bruxism [None]
  - Mobility decreased [None]
  - Salivary hypersecretion [None]
  - Tremor [None]
  - Diarrhoea [None]
  - Dizziness [None]
  - Communication disorder [None]
  - Oesophageal pain [None]
  - Nausea [None]

NARRATIVE: CASE EVENT DATE: 20150812
